FAERS Safety Report 7515641-2 (Version None)
Quarter: 2011Q2

REPORT INFORMATION
  Report Type: 
  Country: None (occurrence: None)
  Receive Date: 20110601
  Receipt Date: 20100721
  Transmission Date: 20111010
  Serious: Yes (Other)
  Sender: FDA-Public Use
  Company Number: US-PFIZER INC-2010091338

PATIENT
  Sex: Male

DRUGS (1)
  1. CHANTIX [Suspect]
     Dosage: UNK
     Dates: end: 20100721

REACTIONS (13)
  - ABDOMINAL DISTENSION [None]
  - ANGER [None]
  - PARANOIA [None]
  - DISTURBANCE IN ATTENTION [None]
  - ABNORMAL DREAMS [None]
  - MENTAL IMPAIRMENT [None]
  - AGITATION [None]
  - FEELING ABNORMAL [None]
  - CRYING [None]
  - EPISTAXIS [None]
  - FLATULENCE [None]
  - HEADACHE [None]
  - DEPRESSED MOOD [None]
